FAERS Safety Report 18071983 (Version 1)
Quarter: 2020Q3

REPORT INFORMATION
  Report Type: Spontaneous
  Country: US (occurrence: US)
  Receive Date: 20200727
  Receipt Date: 20200727
  Transmission Date: 20201103
  Serious: No
  Sender: FDA-Public Use
  Company Number: US-PFIZER INC-2020283070

PATIENT
  Age: 65 Year
  Sex: Female

DRUGS (1)
  1. ZOLOFT [Suspect]
     Active Substance: SERTRALINE HYDROCHLORIDE
     Indication: NERVE INJURY
     Dosage: UNK (A HIGH DOSE)

REACTIONS (4)
  - Off label use [Unknown]
  - Fall [Unknown]
  - Dizziness [Unknown]
  - Product use in unapproved indication [Unknown]
